FAERS Safety Report 6921383-4 (Version None)
Quarter: 2010Q3

REPORT INFORMATION
  Report Type: 
  Country: None (occurrence: None)
  Receive Date: 20100812
  Receipt Date: 20100729
  Transmission Date: 20110219
  Serious: Yes (Other)
  Sender: FDA-Public Use
  Company Number: PHHY2010DE51955

PATIENT
  Sex: Male
  Weight: 92 kg

DRUGS (8)
  1. LAF237 LAF237+ [Suspect]
     Indication: DIABETES MELLITUS
     Dosage: 100 MG PER DAY
     Route: 048
     Dates: start: 20080714
  2. RASILEZ [Suspect]
     Dosage: 150 MG PER DAY
     Dates: start: 20090801
  3. METFORMIN HCL [Concomitant]
     Indication: DIABETES MELLITUS
     Dosage: 850 MG PER DAY
     Route: 048
     Dates: start: 20080714
  4. KARVEA [Concomitant]
     Dosage: 150 MG PER DAY
     Dates: start: 20091101
  5. ASS ^CT-ARZNEIMITTEL^ [Concomitant]
     Dosage: 100 MG PER DAY
     Dates: start: 20000301
  6. SIMVABETA [Concomitant]
     Dosage: 40 MG PER DAY
     Dates: start: 20031001
  7. NEBIVOLOL HCL [Concomitant]
     Dosage: UNK
     Dates: start: 20070101
  8. CARMEN [Concomitant]
     Dosage: 20 MG PER DAY
     Dates: start: 20071101

REACTIONS (2)
  - BLOOD GLUCOSE INCREASED [None]
  - GLYCOSYLATED HAEMOGLOBIN INCREASED [None]
